FAERS Safety Report 6920378-4 (Version None)
Quarter: 2010Q3

REPORT INFORMATION
  Report Type: 
  Country: None (occurrence: None)
  Receive Date: 20100804
  Receipt Date: 20100121
  Transmission Date: 20110219
  Serious: No
  Sender: FDA-Public Use
  Company Number: 2010-0264

PATIENT
  Age: 59 Year
  Sex: Female

DRUGS (5)
  1. SOMATULINE DEPOT [Suspect]
     Indication: ACROMEGALY
     Dosage: (90 MG, ONCE); (90 MG,ONCE)
     Dates: start: 20100118, end: 20100118
  2. SOMATULINE DEPOT [Suspect]
     Indication: ACROMEGALY
     Dosage: (90 MG, ONCE); (90 MG,ONCE)
     Dates: start: 20100215, end: 20100215
  3. NEXIUM [Concomitant]
  4. SINGULAIR [Concomitant]
  5. SYNTHROID (LEVOTHYDROXINE SODIUM) [Concomitant]

REACTIONS (4)
  - CHILLS [None]
  - MALAISE [None]
  - MYALGIA [None]
  - NAUSEA [None]
